FAERS Safety Report 9720958 (Version 1)
Quarter: 2013Q4

REPORT INFORMATION
  Report Type: Spontaneous
  Country: GB (occurrence: GB)
  Receive Date: 20131129
  Receipt Date: 20131129
  Transmission Date: 20140711
  Serious: Yes (Death, Life-Threatening, Other)
  Sender: FDA-Public Use
  Company Number: GB-B.I. PHARMACEUTICALS,INC./RIDGEFIELD-2013-BI-39777UK

PATIENT
  Age: 73 Year
  Sex: Male

DRUGS (6)
  1. PRADAXA [Suspect]
     Indication: THROMBOSIS PROPHYLAXIS
     Route: 048
  2. DOXAZOSIN [Concomitant]
  3. NAPROXEN [Concomitant]
  4. OMEPRAZOLE [Concomitant]
  5. RAMIPRIL [Concomitant]
  6. SIMVASTATIN [Concomitant]

REACTIONS (1)
  - Haemorrhage intracranial [Fatal]
